FAERS Safety Report 9426481 (Version 1)
Quarter: 2013Q3

REPORT INFORMATION
  Report Type: Spontaneous
  Country: US (occurrence: None)
  Receive Date: 20130729
  Receipt Date: 20130729
  Transmission Date: 20140515
  Serious: Yes (Life-Threatening)
  Sender: FDA-Public Use
  Company Number: None

PATIENT
  Age: 49 Year
  Sex: Male
  Weight: 106.6 kg

DRUGS (1)
  1. CYMBALTA [Suspect]
     Dates: start: 20130606, end: 20130619

REACTIONS (7)
  - Depression [None]
  - Suicidal ideation [None]
  - Intentional self-injury [None]
  - Abnormal behaviour [None]
  - Anger [None]
  - Aggression [None]
  - Legal problem [None]
